FAERS Safety Report 6826593-2 (Version None)
Quarter: 2010Q2

REPORT INFORMATION
  Report Type: 
  Country: None (occurrence: None)
  Receive Date: 20100520
  Receipt Date: 20090813
  Transmission Date: 20101027
  Serious: Yes (Death, Other)
  Sender: FDA-Public Use
  Company Number: 2009218205

PATIENT
  Age: 44 Year
  Sex: Female
  Weight: 66 kg

DRUGS (3)
  1. PROVERA [Suspect]
     Indication: HORMONE REPLACEMENT THERAPY
     Dosage: 10 MG, ORAL ; 2.5 MG
     Route: 048
     Dates: start: 19940101, end: 19990101
  2. PROVERA [Suspect]
     Indication: HORMONE REPLACEMENT THERAPY
     Dosage: 10 MG, ORAL ; 2.5 MG
     Route: 048
     Dates: start: 19940101, end: 19990101
  3. PREMARIN [Suspect]
     Indication: HORMONE REPLACEMENT THERAPY
     Dosage: 0.625 MG
     Dates: start: 19940101, end: 19990101

REACTIONS (1)
  - BREAST CANCER [None]
